FAERS Safety Report 17930738 (Version 2)
Quarter: 2020Q4

REPORT INFORMATION
  Report Type: Other
  Country: CA (occurrence: CA)
  Receive Date: 20200623
  Receipt Date: 20201211
  Transmission Date: 20210113
  Serious: Yes (Hospitalization, Other)
  Sender: FDA-Public Use
  Company Number: CA-VALIDUS PHARMACEUTICALS LLC-CA-2020VAL000499

PATIENT

DRUGS (8)
  1. LASIX [Suspect]
     Active Substance: FUROSEMIDE
     Indication: PRODUCT USED FOR UNKNOWN INDICATION
     Dosage: UNK
     Route: 065
  2. OCTREOTIDE. [Suspect]
     Active Substance: OCTREOTIDE
     Dosage: 60 MG, QM
     Route: 030
     Dates: start: 20200523, end: 20200611
  3. SANDOSTATIN [Suspect]
     Active Substance: OCTREOTIDE ACETATE
     Indication: NEUROENDOCRINE CARCINOMA
     Dosage: 100 ?G, TOTAL
     Route: 058
     Dates: start: 20150225, end: 201502
  4. TYLENOL [Concomitant]
     Active Substance: ACETAMINOPHEN
     Indication: PRODUCT USED FOR UNKNOWN INDICATION
     Dosage: UNK
  5. OCTREOTIDE. [Suspect]
     Active Substance: OCTREOTIDE
     Dosage: 30 MG, QM
     Route: 030
     Dates: start: 20191206
  6. OCTREOTIDE. [Suspect]
     Active Substance: OCTREOTIDE
     Dosage: 30 MG, QM (POWDER)
     Route: 030
  7. OCTREOTIDE. [Suspect]
     Active Substance: OCTREOTIDE
     Dosage: 60 MG, QM
     Route: 030
  8. OCTREOTIDE. [Suspect]
     Active Substance: OCTREOTIDE
     Indication: NEUROENDOCRINE CARCINOMA
     Dosage: 30 MG, QM
     Route: 030
     Dates: end: 20170302

REACTIONS (21)
  - Cardiac failure congestive [Unknown]
  - Product container issue [Unknown]
  - Injection site pain [Unknown]
  - Abdominal discomfort [Unknown]
  - Blood pressure increased [Unknown]
  - Peripheral coldness [Unknown]
  - Vision blurred [Unknown]
  - Dehydration [Unknown]
  - Fatigue [Unknown]
  - Tremor [Unknown]
  - Balance disorder [Unknown]
  - Cerebrovascular accident [Unknown]
  - Blood pressure diastolic decreased [Unknown]
  - Diarrhoea [Unknown]
  - Dizziness [Unknown]
  - Myocardial infarction [Unknown]
  - Blood pressure fluctuation [Unknown]
  - Malaise [Unknown]
  - Cyanosis [Unknown]
  - Weight decreased [Unknown]
  - Headache [Unknown]

NARRATIVE: CASE EVENT DATE: 20160913
